FAERS Safety Report 9413794 (Version 5)
Quarter: 2013Q4

REPORT INFORMATION
  Report Type: Report from Study
  Country: CA (occurrence: CA)
  Receive Date: 20130723
  Receipt Date: 20131112
  Transmission Date: 20140711
  Serious: Yes (Other)
  Sender: FDA-Public Use
  Company Number: CA-ROCHE-1251892

PATIENT
  Age: 27 Year
  Sex: Female

DRUGS (12)
  1. OMALIZUMAB [Suspect]
     Indication: ASTHMA
     Route: 058
     Dates: start: 20121017
  2. OMALIZUMAB [Suspect]
     Route: 065
     Dates: start: 20130724
  3. OMALIZUMAB [Suspect]
     Route: 065
     Dates: start: 20131018
  4. ALVESCO [Concomitant]
  5. BRICANYL [Concomitant]
  6. EPIPEN [Concomitant]
  7. MYCOSTATIN [Concomitant]
  8. NASACORT [Concomitant]
  9. NEXIUM [Concomitant]
  10. OXEZE [Concomitant]
  11. REACTINE (CANADA) [Concomitant]
  12. CEFTIN [Concomitant]

REACTIONS (4)
  - Asthma [Recovered/Resolved]
  - Cough [Unknown]
  - Osteoporosis [Not Recovered/Not Resolved]
  - Sinusitis [Recovered/Resolved]
